FAERS Safety Report 18586331 (Version 1)
Quarter: 2020Q4

REPORT INFORMATION
  Report Type: Spontaneous
  Country: US (occurrence: US)
  Receive Date: 20201207
  Receipt Date: 20201207
  Transmission Date: 20210114
  Serious: No
  Sender: FDA-Public Use
  Company Number: US-ANTARES PHARMA, INC.-2020-SPO-MX-0622

PATIENT
  Age: 67 Year
  Sex: Female

DRUGS (3)
  1. OTREXUP [Suspect]
     Active Substance: METHOTREXATE
     Indication: OCCUPATIONAL EXPOSURE TO PRODUCT
     Dosage: 25 MG/0.4ML, UNK
  2. FLUOXETINE [Concomitant]
     Active Substance: FLUOXETINE HYDROCHLORIDE
     Indication: DEPRESSION
  3. LISINOPRIL. [Concomitant]
     Active Substance: LISINOPRIL
     Indication: HYPERTENSION

REACTIONS (7)
  - Pruritus [Unknown]
  - Eye irritation [Unknown]
  - Skin burning sensation [Unknown]
  - Lip pruritus [Unknown]
  - Occupational exposure to product [Unknown]
  - Eye pruritus [Unknown]
  - Oral discomfort [Unknown]

NARRATIVE: CASE EVENT DATE: 20200306
